FAERS Safety Report 15307677 (Version 1)
Quarter: 2018Q3

REPORT INFORMATION
  Report Type: Spontaneous
  Country: US (occurrence: US)
  Receive Date: 20180822
  Receipt Date: 20180822
  Transmission Date: 20181010
  Serious: No
  Sender: FDA-Public Use
  Company Number: US-ARBOR PHARMACEUTICALS, LLC-US-2018ARB000795

PATIENT
  Sex: Female

DRUGS (1)
  1. OTOVEL [Suspect]
     Active Substance: CIPROFLOXACIN\FLUOCINOLONE ACETONIDE
     Indication: EAR INFECTION
     Dosage: 1 GTT, Q12H
     Route: 001

REACTIONS (2)
  - Product packaging quantity issue [Unknown]
  - Product use in unapproved indication [Unknown]
